FAERS Safety Report 16016257 (Version 1)
Quarter: 2019Q1

REPORT INFORMATION
  Report Type: Spontaneous
  Country: US (occurrence: US)
  Receive Date: 20190227
  Receipt Date: 20190227
  Transmission Date: 20190418
  Serious: Yes (Hospitalization)
  Sender: FDA-Public Use
  Company Number: None

PATIENT
  Age: 63 Year
  Sex: Female

DRUGS (8)
  1. DICLOFENAC [Concomitant]
     Active Substance: DICLOFENAC
  2. SYNVISC-ONE [Concomitant]
     Active Substance: HYLAN G-F 20
  3. ASPIRIN. [Concomitant]
     Active Substance: ASPIRIN
  4. HUMIRA [Suspect]
     Active Substance: ADALIMUMAB
     Indication: RHEUMATOID ARTHRITIS
     Dosage: ?          OTHER FREQUENCY:QW;?
     Route: 058
     Dates: start: 20150401
  5. VALACYCLOVIR [Concomitant]
     Active Substance: VALACYCLOVIR HYDROCHLORIDE
  6. VITAMIN D3 [Concomitant]
     Active Substance: CHOLECALCIFEROL
  7. PRAVASTATIN. [Concomitant]
     Active Substance: PRAVASTATIN
  8. HYDROXYCHLOR [Concomitant]
     Active Substance: HYDROXYCHLOROQUINE

REACTIONS (2)
  - Knee arthroplasty [None]
  - Therapy cessation [None]

NARRATIVE: CASE EVENT DATE: 20190213
